FAERS Safety Report 13081443 (Version 5)
Quarter: 2017Q4

REPORT INFORMATION
  Report Type: Spontaneous
  Country: US (occurrence: US)
  Receive Date: 20170103
  Receipt Date: 20171229
  Transmission Date: 20180320
  Serious: Yes (Other)
  Sender: FDA-Public Use
  Company Number: US-PFIZER INC-2016596974

PATIENT
  Age: 82 Year
  Sex: Female
  Weight: 49.9 kg

DRUGS (7)
  1. XELJANZ XR [Suspect]
     Active Substance: TOFACITINIB CITRATE
     Indication: RHEUMATOID ARTHRITIS
     Dosage: UNK
     Route: 048
  2. XELJANZ XR [Suspect]
     Active Substance: TOFACITINIB CITRATE
     Dosage: 11 MG, 1X/DAY
     Route: 048
     Dates: start: 20161101
  3. SOTALOL. [Concomitant]
     Active Substance: SOTALOL
     Indication: ARRHYTHMIA
     Dosage: 0.5 DF, 2X/DAY (40MG TWICE A DAY TAKES ONE HALF TABLET)
  4. VITAMIN B12 [Concomitant]
     Active Substance: CYANOCOBALAMIN
     Dosage: 2500 UG, 1X/DAY
  5. XELJANZ XR [Suspect]
     Active Substance: TOFACITINIB CITRATE
     Dosage: 11 MG, 1X/DAY
     Route: 048
     Dates: start: 20161102
  6. SOTALOL. [Concomitant]
     Active Substance: SOTALOL
     Dosage: 40 MG, 2X/DAY
  7. BIOTIN [Concomitant]
     Active Substance: BIOTIN
     Indication: ALOPECIA
     Dosage: 2500 UG, 1X/DAY
     Dates: start: 2016

REACTIONS (13)
  - Malaise [Unknown]
  - Rhinorrhoea [Not Recovered/Not Resolved]
  - Serum ferritin increased [Unknown]
  - Chills [Unknown]
  - Alopecia [Not Recovered/Not Resolved]
  - Acne [Unknown]
  - Pyrexia [Recovering/Resolving]
  - Night sweats [Unknown]
  - Anaemia [Unknown]
  - Skin lesion [Not Recovered/Not Resolved]
  - Depressed mood [Unknown]
  - Sjogren^s syndrome [Not Recovered/Not Resolved]
  - Cough [Unknown]

NARRATIVE: CASE EVENT DATE: 2016
